FAERS Safety Report 15257018 (Version 1)
Quarter: 2018Q3

REPORT INFORMATION
  Report Type: Spontaneous
  Country: HR (occurrence: HR)
  Receive Date: 20180808
  Receipt Date: 20180808
  Transmission Date: 20181010
  Serious: Yes (Death, Hospitalization)
  Sender: FDA-Public Use
  Company Number: HR-MYLANLABS-2018M1059785

PATIENT
  Age: 67 Year
  Sex: Female

DRUGS (1)
  1. PROPAFENONE. [Suspect]
     Active Substance: PROPAFENONE
     Indication: PRODUCT USED FOR UNKNOWN INDICATION
     Dosage: UNK
     Route: 048
     Dates: start: 2017, end: 2017

REACTIONS (9)
  - Bradycardia [Fatal]
  - Electrocardiogram QRS complex prolonged [Fatal]
  - Hypotension [Fatal]
  - Loss of consciousness [Fatal]
  - Nausea [Fatal]
  - Atrioventricular block [Fatal]
  - Toxicity to various agents [Fatal]
  - Completed suicide [Fatal]
  - Abdominal pain [Fatal]

NARRATIVE: CASE EVENT DATE: 2017
